FAERS Safety Report 7233997-5 (Version None)
Quarter: 2011Q1

REPORT INFORMATION
  Report Type: 
  Country: None (occurrence: None)
  Receive Date: 20110113
  Receipt Date: 20110113
  Transmission Date: 20110831
  Serious: Yes (Hospitalization, Disabling, Other)
  Sender: FDA-Public Use
  Company Number: None

PATIENT
  Age: 54 Year
  Sex: Female
  Weight: 105.2345 kg

DRUGS (2)
  1. SOLU-MEDROL [Suspect]
     Indication: PROPHYLAXIS
     Dosage: Q 4 HOURS IV BOLUS
     Route: 040
     Dates: start: 20010422, end: 20010502
  2. PREDNISONE [Suspect]
     Indication: SYSTEMIC LUPUS ERYTHEMATOSUS
     Dosage: DAILY PO
     Route: 048
     Dates: start: 20020224, end: 20021107

REACTIONS (9)
  - IMPAIRED WORK ABILITY [None]
  - PULMONARY HYPERTENSION [None]
  - EXERCISE TOLERANCE DECREASED [None]
  - OSTEONECROSIS [None]
  - OBESITY [None]
  - FALL [None]
  - EMOTIONAL DISORDER [None]
  - IMMOBILE [None]
  - ECONOMIC PROBLEM [None]
